FAERS Safety Report 24538825 (Version 1)
Quarter: 2024Q4

REPORT INFORMATION
  Report Type: Spontaneous
  Country: CN (occurrence: CN)
  Receive Date: 20241023
  Receipt Date: 20241023
  Transmission Date: 20250115
  Serious: Yes (Hospitalization, Other)
  Sender: ASTELLAS
  Company Number: CN-ASTELLAS-2024-AER-013449

PATIENT
  Age: 57 Year
  Sex: Female
  Weight: 52 kg

DRUGS (2)
  1. XOSPATA [Suspect]
     Active Substance: GILTERITINIB
     Indication: Acute myeloid leukaemia
     Route: 048
     Dates: start: 202211
  2. XOSPATA [Suspect]
     Active Substance: GILTERITINIB
     Route: 048
     Dates: start: 202211, end: 20241007

REACTIONS (6)
  - Hyperpyrexia [Recovering/Resolving]
  - Pneumonia [Unknown]
  - Bronchiectasis [Unknown]
  - Differentiation syndrome [Unknown]
  - Pleural effusion [Unknown]
  - Underdose [Unknown]

NARRATIVE: CASE EVENT DATE: 20221101
